FAERS Safety Report 9124920 (Version 1)
Quarter: 2013Q1

REPORT INFORMATION
  Report Type: Spontaneous
  Country: US (occurrence: US)
  Receive Date: 20130227
  Receipt Date: 20130227
  Transmission Date: 20140127
  Serious: Yes (Hospitalization)
  Sender: FDA-Public Use
  Company Number: US-GILEAD-2013-0068134

PATIENT
  Sex: Female

DRUGS (2)
  1. LETAIRIS [Suspect]
     Indication: COR PULMONALE CHRONIC
     Route: 048
  2. ADCIRCA [Suspect]

REACTIONS (5)
  - Tremor [Unknown]
  - Pneumonia [Unknown]
  - Infection [Unknown]
  - Dialysis [Unknown]
  - Constipation [Unknown]
